FAERS Safety Report 20333476 (Version 2)
Quarter: 2022Q1

REPORT INFORMATION
  Report Type: Spontaneous
  Country: AR (occurrence: AR)
  Receive Date: 20220113
  Receipt Date: 20220203
  Transmission Date: 20220423
  Serious: Yes (Disabling)
  Sender: FDA-Public Use
  Company Number: AR-PFIZER INC-202200019608

PATIENT
  Age: 51 Year
  Sex: Female

DRUGS (1)
  1. XELJANZ XR [Suspect]
     Active Substance: TOFACITINIB CITRATE
     Indication: Rheumatoid arthritis
     Dosage: 11 MG, DAILY
     Dates: start: 20190927, end: 20211228

REACTIONS (2)
  - Pain [Not Recovered/Not Resolved]
  - Loss of personal independence in daily activities [Unknown]
